FAERS Safety Report 6622972-7 (Version None)
Quarter: 2010Q1

REPORT INFORMATION
  Report Type: 
  Country: None (occurrence: None)
  Receive Date: 20100310
  Receipt Date: 20100107
  Transmission Date: 20100710
  Serious: Yes (Hospitalization)
  Sender: FDA-Public Use
  Company Number: US-BIOGENIDEC-2010BI000544

PATIENT
  Age: 35 Year
  Sex: Female

DRUGS (3)
  1. AVONEX [Suspect]
     Indication: MULTIPLE SCLEROSIS
     Route: 030
     Dates: start: 20070101
  2. MEDICATION (NOS) [Concomitant]
     Indication: BIPOLAR DISORDER
     Route: 048
  3. MEDICATION (NOS) [Concomitant]
     Indication: DEPRESSION
     Route: 048

REACTIONS (8)
  - ASTIGMATISM [None]
  - BALANCE DISORDER [None]
  - DEPRESSION [None]
  - FATIGUE [None]
  - HYPOAESTHESIA [None]
  - INJECTION SITE PAIN [None]
  - KIDNEY INFECTION [None]
  - MUSCULAR WEAKNESS [None]
